FAERS Safety Report 13540457 (Version 2)
Quarter: 2017Q2

REPORT INFORMATION
  Report Type: Report from Study
  Country: US (occurrence: US)
  Receive Date: 20170512
  Receipt Date: 20170609
  Transmission Date: 20170830
  Serious: No
  Sender: FDA-Public Use
  Company Number: US-009507513-1704USA008093

PATIENT
  Age: 67 Year
  Sex: Female

DRUGS (2)
  1. KEYTRUDA [Suspect]
     Active Substance: PEMBROLIZUMAB
     Dosage: 225 IV EVERY 3 WEEKS
     Route: 042
     Dates: start: 20170216, end: 20170330
  2. KEYTRUDA [Suspect]
     Active Substance: PEMBROLIZUMAB
     Dosage: 225 IV EVERY 3 WEEKS
     Route: 042
     Dates: start: 20170216, end: 20170330

REACTIONS (2)
  - Product use in unapproved indication [Unknown]
  - Adverse event [Unknown]

NARRATIVE: CASE EVENT DATE: 20170216
